FAERS Safety Report 25547544 (Version 2)
Quarter: 2025Q3

REPORT INFORMATION
  Report Type: Spontaneous
  Country: US (occurrence: US)
  Receive Date: 20250714
  Receipt Date: 20250918
  Transmission Date: 20251021
  Serious: Yes (Hospitalization, Other)
  Sender: DR REDDYS
  Company Number: US-DRL-USA-USA/2025/07/010057

PATIENT
  Age: 24 Year
  Sex: Female

DRUGS (6)
  1. ACCUTANE [Suspect]
     Active Substance: ISOTRETINOIN
     Indication: Product used for unknown indication
     Dosage: TOTAL DAILY DOSE WAS 100 MG
     Route: 065
     Dates: start: 20250301, end: 20250628
  2. ACCUTANE [Suspect]
     Active Substance: ISOTRETINOIN
     Route: 065
     Dates: start: 20250301, end: 20250628
  3. LEXAPRO Pill 20 mg [Concomitant]
     Indication: Depression
     Route: 065
  4. LEXAPRO Pill 20 mg [Concomitant]
     Indication: Anxiety
  5. Nurtec Dissolvable Tablet 75 mg [Concomitant]
     Indication: Migraine
     Route: 065
  6. Nurtec Dissolvable Tablet 75 mg [Concomitant]
     Indication: Tension headache

REACTIONS (2)
  - Kidney infection [Unknown]
  - Illness [Unknown]

NARRATIVE: CASE EVENT DATE: 20250629
